FAERS Safety Report 5021676-4 (Version None)
Quarter: 2006Q2

REPORT INFORMATION
  Report Type: 
  Country: None (occurrence: None)
  Receive Date: 20060605
  Receipt Date: 20060518
  Transmission Date: 20061013
  Serious: Yes (Death)
  Sender: FDA-Public Use
  Company Number: USA041082676

PATIENT
  Age: 38 Year
  Sex: Male

DRUGS (2)
  1. ZYPREXA [Suspect]
     Indication: DEPRESSION
     Dosage: 2.5 MG, 3/D, ORAL
     Route: 048
     Dates: start: 20020725
  2. PAXIL [Concomitant]

REACTIONS (15)
  - AKATHISIA [None]
  - ANHEDONIA [None]
  - APATHY [None]
  - BONE LESION [None]
  - CEREBROVASCULAR DISORDER [None]
  - CEREBROVASCULAR SPASM [None]
  - COMPLETED SUICIDE [None]
  - CONDITION AGGRAVATED [None]
  - DEPRESSION [None]
  - FEELING ABNORMAL [None]
  - GUN SHOT WOUND [None]
  - HEADACHE [None]
  - SLEEP DISORDER [None]
  - SOMATOFORM DISORDER [None]
  - THINKING ABNORMAL [None]
